FAERS Safety Report 4836673-9 (Version None)
Quarter: 2005Q4

REPORT INFORMATION
  Report Type: 
  Country: None (occurrence: None)
  Receive Date: 20051121
  Receipt Date: 20051110
  Transmission Date: 20060501
  Serious: Yes (Other)
  Sender: FDA-Public Use
  Company Number: 2005-10-1272

PATIENT
  Age: 66 Year
  Sex: Male
  Weight: 68 kg

DRUGS (7)
  1. REBETOL [Suspect]
     Indication: HEPATITIS C
     Dosage: 800-600* MG ORAL
     Route: 048
     Dates: start: 20040825, end: 20041019
  2. REBETOL [Suspect]
     Indication: HEPATITIS C
     Dosage: 800-600* MG ORAL
     Route: 048
     Dates: start: 20040825, end: 20050209
  3. REBETOL [Suspect]
     Indication: HEPATITIS C
     Dosage: 800-600* MG ORAL
     Route: 048
     Dates: start: 20041020, end: 20050209
  4. INTRON A [Suspect]
     Indication: HEPATITIS C
     Dosage: 6 MIU QD-TIW* INTRAMUSCULAR
     Route: 030
     Dates: start: 20040825, end: 20040906
  5. INTRON A [Suspect]
     Indication: HEPATITIS C
     Dosage: 6 MIU QD-TIW* INTRAMUSCULAR
     Route: 030
     Dates: start: 20040825, end: 20050207
  6. INTRON A [Suspect]
     Indication: HEPATITIS C
     Dosage: 6 MIU QD-TIW* INTRAMUSCULAR
     Route: 030
     Dates: start: 20040908, end: 20050207
  7. NORVASC [Concomitant]

REACTIONS (2)
  - HYPOAESTHESIA [None]
  - LACUNAR INFARCTION [None]
